FAERS Safety Report 13091649 (Version 1)
Quarter: 2017Q1

REPORT INFORMATION
  Report Type: Spontaneous
  Country: US (occurrence: US)
  Receive Date: 20170106
  Receipt Date: 20170106
  Transmission Date: 20170428
  Serious: No
  Sender: FDA-Public Use
  Company Number: US-DRREDDYS-USA/USA/16/0076733

PATIENT
  Age: 58 Year
  Sex: Male
  Weight: 74.8 kg

DRUGS (1)
  1. HABITROL [Suspect]
     Active Substance: NICOTINE
     Indication: EX-TOBACCO USER
     Route: 062
     Dates: start: 20160215

REACTIONS (4)
  - Overdose [Unknown]
  - Treatment noncompliance [Unknown]
  - Nicotine dependence [Unknown]
  - Product quality issue [Unknown]

NARRATIVE: CASE EVENT DATE: 20160217
